FAERS Safety Report 25188371 (Version 3)
Quarter: 2025Q2

REPORT INFORMATION
  Report Type: Spontaneous
  Country: JP (occurrence: JP)
  Receive Date: 20250411
  Receipt Date: 20250528
  Transmission Date: 20250716
  Serious: Yes (Hospitalization, Other)
  Sender: GLAXOSMITHKLINE
  Company Number: JP-GSKJP-JP2025JPN041094AA

PATIENT

DRUGS (25)
  1. DAPRODUSTAT [Suspect]
     Active Substance: DAPRODUSTAT
     Dosage: 4 MG, 1D, AFTER BREAKFAST
  2. ASPIRIN [Concomitant]
     Active Substance: ASPIRIN
     Dosage: 100 MG, 1D, AFTER BREAKFAST
     Route: 048
     Dates: start: 20250301, end: 20250325
  3. LANSOPRAZOLE [Concomitant]
     Active Substance: LANSOPRAZOLE
     Dosage: 15 MG, 1D, AFTER BREAKFAST
     Dates: start: 20250301, end: 20250307
  4. POTASSIUM ASPARTATE [Concomitant]
     Active Substance: POTASSIUM ASPARTATE
     Dosage: 900 MG, TID, AFTER BREAKFAST, LUNCH AND DINNER
     Dates: start: 20250307, end: 20250423
  5. MIYA-BM [Concomitant]
     Active Substance: CLOSTRIDIUM BUTYRICUM SPORES STRAIN M-55
     Dosage: 3 DF, TID, AFTER BREAKFAST, LUNCH AND DINNER
     Dates: start: 20250308
  6. PRAVASTATIN SODIUM [Concomitant]
     Active Substance: PRAVASTATIN SODIUM
     Dosage: 5 MG, 1D, AFTER BREAKFAST
     Dates: start: 20250303, end: 20250328
  7. PRAVASTATIN SODIUM [Concomitant]
     Active Substance: PRAVASTATIN SODIUM
     Dosage: 2.5 MG, 1D, AFTER BREAKFAST
     Dates: start: 20250329
  8. ELDECALCITOL [Concomitant]
     Active Substance: ELDECALCITOL
     Dosage: 0.75 UG, 1D, AFTER BREAKFAST
     Dates: start: 20250303, end: 20250328
  9. CILOSTAZOL [Concomitant]
     Active Substance: CILOSTAZOL
     Dosage: 200 MG, BID, AFTER BREAKFAST AND DINNER
     Dates: end: 20250412
  10. MIRTAZAPINE [Concomitant]
     Active Substance: MIRTAZAPINE
     Dosage: 15 MG, 1D
     Dates: start: 20250307, end: 20250325
  11. NIFEDIPINE [Concomitant]
     Active Substance: NIFEDIPINE
     Dates: start: 20250301, end: 20250307
  12. DOXAZOSIN MESYLATE [Concomitant]
     Active Substance: DOXAZOSIN MESYLATE
     Dosage: 1 MG, 1D, AFTER BREAKFAST
     Dates: start: 20250326
  13. ALFACALCIDOL [Concomitant]
     Active Substance: ALFACALCIDOL
     Dosage: 1 ?G, 1D, AFTER BREAKFAST
     Dates: start: 20250329, end: 20250410
  14. REPAGLINIDE [Concomitant]
     Active Substance: REPAGLINIDE
     Dosage: 0.5 MG, BID
     Dates: start: 20250401, end: 20250401
  15. REPAGLINIDE [Concomitant]
     Active Substance: REPAGLINIDE
     Dosage: 0.5 MG, BID
     Dates: start: 20250402, end: 20250402
  16. REPAGLINIDE [Concomitant]
     Active Substance: REPAGLINIDE
     Dosage: 1 MG, BID
     Dates: start: 20250403, end: 20250403
  17. REPAGLINIDE [Concomitant]
     Active Substance: REPAGLINIDE
     Dosage: 1.5 MG, BID
     Dates: start: 20250404, end: 20250408
  18. JANUVIA [Concomitant]
     Active Substance: SITAGLIPTIN PHOSPHATE
     Dosage: 25 MG, 1D, AFTER BREAKFAST
     Dates: start: 20250326, end: 20250409
  19. INSULIN HUMAN [Concomitant]
     Active Substance: INSULIN HUMAN
     Dates: start: 20250328, end: 20250403
  20. INSULIN GLARGINE [Concomitant]
     Active Substance: INSULIN GLARGINE
     Dates: start: 20250328, end: 20250403
  21. POTASSIUM ASPARTATE [Concomitant]
     Active Substance: POTASSIUM ASPARTATE
     Dosage: 900 MG, TID, AFTER BREAKFAST, LUNCH AND DINNER
     Dates: start: 20250402
  22. Aspirin dialuminate mixt [Concomitant]
     Dosage: 1 DF, 1D, AFTER BREAKFAST
     Dates: start: 20250403
  23. HERBALS [Concomitant]
     Active Substance: HERBALS
     Dosage: 3 PACKETS, TID, AFTER BREAKFAST, LUNCH AND DINNER
     Dates: start: 20250408
  24. AMLODIPINE BESYLATE [Concomitant]
     Active Substance: AMLODIPINE BESYLATE
     Dosage: 2.5 MG, 1D, AFTER BREAKFAST
     Dates: start: 20250410
  25. VADADUSTAT [Concomitant]
     Active Substance: VADADUSTAT
     Dosage: 300 MG, 1D, AFTER BREAKFAST
     Dates: start: 20250409

REACTIONS (9)
  - Lacunar infarction [Not Recovered/Not Resolved]
  - Paralysis [Unknown]
  - Depressed level of consciousness [Unknown]
  - Ventricular tachycardia [Unknown]
  - Haemoglobin increased [Recovered/Resolved]
  - Dysarthria [Unknown]
  - Decreased appetite [Unknown]
  - Erythema [Unknown]
  - Constipation [Unknown]

NARRATIVE: CASE EVENT DATE: 20250227
